FAERS Safety Report 5028213-9 (Version None)
Quarter: 2006Q2

REPORT INFORMATION
  Report Type: 
  Country: None (occurrence: None)
  Receive Date: 20060613
  Receipt Date: 20060601
  Transmission Date: 20061013
  Serious: Yes (Hospitalization)
  Sender: FDA-Public Use
  Company Number: 2006VX000599

PATIENT
  Age: 66 Year
  Sex: Male

DRUGS (8)
  1. INTERFERON ALFACON-1                   (INTERFERON ALFACON-1) [Suspect]
     Indication: HEPATITIS C
     Dosage: 9 UG; QD; SC; SEE IMAGE
     Route: 058
     Dates: start: 20060116, end: 20060130
  2. INTERFERON ALFACON-1                   (INTERFERON ALFACON-1) [Suspect]
     Indication: HEPATITIS C
     Dosage: 9 UG; QD; SC; SEE IMAGE
     Route: 058
     Dates: start: 20060131, end: 20060527
  3. GLYCYRRHIZINATE [Concomitant]
  4. POTASSIUM [Concomitant]
  5. PURSENNID [Concomitant]
  6. CINAL [Concomitant]
  7. JUVELA [Concomitant]
  8. URSODEOXYCHOLIC ACID [Concomitant]

REACTIONS (3)
  - BLOOD PRESSURE INCREASED [None]
  - CONVULSION [None]
  - GLOSSOPTOSIS [None]
